FAERS Safety Report 4994611-2 (Version None)
Quarter: 2006Q2

REPORT INFORMATION
  Report Type: 
  Country: None (occurrence: None)
  Receive Date: 20060505
  Receipt Date: 20050810
  Transmission Date: 20061013
  Serious: Yes (Hospitalization, Disabling, Other)
  Sender: FDA-Public Use
  Company Number: US-MERCK-0508USA01932

PATIENT
  Age: 40 Year
  Sex: Male
  Weight: 105 kg

DRUGS (8)
  1. VIOXX [Suspect]
     Indication: BACK PAIN
     Route: 048
     Dates: start: 19990101, end: 20020701
  2. VIOXX [Suspect]
     Indication: MIGRAINE
     Route: 048
     Dates: start: 19990101, end: 20020701
  3. NEURONTIN [Concomitant]
     Indication: BACK PAIN
     Route: 065
     Dates: start: 19910101, end: 20050101
  4. WARFARIN [Concomitant]
     Route: 065
  5. SPIRONOLACTONE [Concomitant]
     Route: 065
  6. ALTACE [Concomitant]
     Route: 065
     Dates: start: 20020701, end: 20040701
  7. COREG [Concomitant]
     Route: 065
     Dates: start: 20020901
  8. ZOCOR [Concomitant]
     Route: 065
     Dates: start: 20020101

REACTIONS (13)
  - BLOOD CHOLESTEROL INCREASED [None]
  - CARDIAC DISORDER [None]
  - CEREBROVASCULAR ACCIDENT [None]
  - CHEST PAIN [None]
  - DEEP VEIN THROMBOSIS [None]
  - GALLBLADDER DISORDER [None]
  - MUSCULOSKELETAL CHEST PAIN [None]
  - MYOCARDIAL INFARCTION [None]
  - OEDEMA PERIPHERAL [None]
  - OVERDOSE [None]
  - PAIN [None]
  - PNEUMONIA [None]
  - THROMBOSIS [None]
